FAERS Safety Report 12542736 (Version 4)
Quarter: 2016Q3

REPORT INFORMATION
  Report Type: Report from Study
  Country: GB (occurrence: GB)
  Receive Date: 20160709
  Receipt Date: 20160821
  Transmission Date: 20161109
  Serious: Yes (Death, Hospitalization, Other)
  Sender: FDA-Public Use
  Company Number: GB-AMGEN-GBRSL2016087929

PATIENT
  Age: 90 Year
  Sex: Female

DRUGS (8)
  1. RANITIDINE. [Concomitant]
     Active Substance: RANITIDINE
     Indication: GASTRIC DISORDER
     Dosage: 150 MG, BID
  2. PROLIA [Suspect]
     Active Substance: DENOSUMAB
     Indication: PRODUCT USED FOR UNKNOWN INDICATION
     Dosage: UNK
     Route: 065
  3. CARBOCISTEINE [Concomitant]
     Active Substance: CARBOCYSTEINE
     Indication: SECRETION DISCHARGE
     Dosage: 750 MG, TID
  4. MAGNESIUM HYDROXIDE. [Concomitant]
     Active Substance: MAGNESIUM HYDROXIDE
     Indication: ABDOMINAL DISCOMFORT
     Dosage: 20 UNK, QD
     Dates: start: 20150507
  5. TIOTROPIUM [Concomitant]
     Active Substance: TIOTROPIUM
     Dosage: 18 MG, QD
  6. SENNA [Concomitant]
     Active Substance: SENNA LEAF\SENNOSIDES\SENNOSIDES A AND B
     Indication: ABDOMINAL DISCOMFORT
     Dosage: 15 MG, QD
  7. TRAMADOL. [Concomitant]
     Active Substance: TRAMADOL
  8. ADCAL D3 [Concomitant]
     Active Substance: CALCIUM CARBONATE\CHOLECALCIFEROL
     Indication: BONE DISORDER
     Dosage: UNK UNK, QD

REACTIONS (17)
  - Acute kidney injury [Not Recovered/Not Resolved]
  - Tubulointerstitial nephritis [Fatal]
  - Renal failure [Not Recovered/Not Resolved]
  - Fall [Unknown]
  - Radius fracture [Unknown]
  - General physical health deterioration [Unknown]
  - Metabolic acidosis [Not Recovered/Not Resolved]
  - Balance disorder [Unknown]
  - C-reactive protein increased [Unknown]
  - Lower respiratory tract infection [Unknown]
  - Bronchial wall thickening [Unknown]
  - Inappropriate antidiuretic hormone secretion [Unknown]
  - Epistaxis [Unknown]
  - Anaemia [Unknown]
  - Pain [Unknown]
  - Mobility decreased [Recovering/Resolving]
  - Activities of daily living impaired [Unknown]

NARRATIVE: CASE EVENT DATE: 2015
